FAERS Safety Report 5294717-7 (Version None)
Quarter: 2007Q2

REPORT INFORMATION
  Report Type: 
  Country: None (occurrence: None)
  Receive Date: 20070409
  Receipt Date: 20070409
  Transmission Date: 20071010
  Serious: Yes (Life-Threatening)
  Sender: FDA-Public Use
  Company Number: None

PATIENT
  Sex: Female
  Weight: 59 kg

DRUGS (3)
  1. FLUDARABINE [Suspect]
     Indication: MYELOID LEUKAEMIA
     Dosage: 51
     Dates: start: 20061222, end: 20061226
  2. MELPAHLAN [Suspect]
     Dosage: 288
     Dates: start: 20061227, end: 20061227
  3. CAMPATH [Concomitant]

REACTIONS (4)
  - ABDOMINAL PAIN [None]
  - BLOOD URINE PRESENT [None]
  - HAEMATOCRIT DECREASED [None]
  - HAEMOGLOBIN DECREASED [None]
